FAERS Safety Report 5782332-8 (Version None)
Quarter: 2008Q2

REPORT INFORMATION
  Report Type: 
  Country: None (occurrence: None)
  Receive Date: 20080623
  Receipt Date: 20080530
  Transmission Date: 20081010
  Serious: No
  Sender: FDA-Public Use
  Company Number: US-BOEHRINGER INGELHEIM GMBH, GERMANY-2008-BP-04895BP

PATIENT
  Sex: Female
  Weight: 108 kg

DRUGS (28)
  1. SPIRIVA [Suspect]
     Indication: EMPHYSEMA
     Route: 055
     Dates: start: 20061201, end: 20070401
  2. SPIRIVA [Suspect]
     Indication: DYSPNOEA
  3. SPIRIVA [Suspect]
     Indication: SLEEP APNOEA SYNDROME
  4. SPIRIVA [Suspect]
  5. ALBUTEROL [Concomitant]
  6. SEROQUEL [Concomitant]
  7. OXYCONTIN [Concomitant]
  8. OXYCODONE HCL [Concomitant]
  9. NASONEX [Concomitant]
  10. VITAMIN D [Concomitant]
  11. SYNTHROID [Concomitant]
  12. ATIVAN [Concomitant]
  13. CELEXA [Concomitant]
  14. ATENOLOL [Concomitant]
  15. COMPAZINE [Concomitant]
  16. LEVSIL [Concomitant]
  17. SOMA [Concomitant]
  18. PREMARIN [Concomitant]
  19. ATIVAN [Concomitant]
  20. MIRALAX [Concomitant]
  21. ZOVIRAX [Concomitant]
  22. MAXZIDE [Concomitant]
  23. PROTONIX [Concomitant]
  24. ULEXA [Concomitant]
  25. BENTYL [Concomitant]
  26. ZYRTEC [Concomitant]
  27. FLEXERIL [Concomitant]
  28. LEVAQUIN [Concomitant]

REACTIONS (1)
  - URINARY RETENTION [None]
